FAERS Safety Report 7274608-2 (Version None)
Quarter: 2011Q1

REPORT INFORMATION
  Report Type: 
  Country: None (occurrence: None)
  Receive Date: 20110202
  Receipt Date: 20110202
  Transmission Date: 20110831
  Serious: Yes (Hospitalization)
  Sender: FDA-Public Use
  Company Number: None

PATIENT
  Age: 85 Year
  Sex: Male
  Weight: 75.7507 kg

DRUGS (1)
  1. FAMCICLOVIR [Suspect]
     Indication: HERPES ZOSTER
     Dosage: 500 MG BID PO
     Route: 048
     Dates: start: 20110121, end: 20110124

REACTIONS (11)
  - BALANCE DISORDER [None]
  - HEADACHE [None]
  - ABNORMAL BEHAVIOUR [None]
  - CEREBRAL ATROPHY [None]
  - DISORIENTATION [None]
  - NERVOUSNESS [None]
  - INSOMNIA [None]
  - VERBIGERATION [None]
  - AGITATION [None]
  - CONFUSIONAL STATE [None]
  - ASTHENIA [None]
